FAERS Safety Report 10778234 (Version 1)
Quarter: 2015Q1

REPORT INFORMATION
  Report Type: Spontaneous
  Country: FR (occurrence: FR)
  Receive Date: 20150209
  Receipt Date: 20150209
  Transmission Date: 20150721
  Serious: Yes (Death, Hospitalization)
  Sender: FDA-Public Use
  Company Number: FR-ABBVIE-15P-056-1344781-00

PATIENT
  Age: 24 Month
  Sex: Female

DRUGS (4)
  1. MICROPAKINE [Suspect]
     Active Substance: VALPROIC ACID
     Indication: ACCIDENTAL OVERDOSE
     Route: 048
     Dates: start: 20140628
  2. NOZINAN [Concomitant]
     Active Substance: LEVOMEPROMAZINE
     Indication: PRODUCT USED FOR UNKNOWN INDICATION
  3. TEGRETOL [Concomitant]
     Active Substance: CARBAMAZEPINE
     Indication: PRODUCT USED FOR UNKNOWN INDICATION
  4. DEPAKINE [Concomitant]
     Active Substance: VALPROATE SODIUM
     Indication: PRODUCT USED FOR UNKNOWN INDICATION

REACTIONS (2)
  - Epilepsy [Fatal]
  - Respiratory distress [Fatal]

NARRATIVE: CASE EVENT DATE: 20140628
